FAERS Safety Report 16951439 (Version 1)
Quarter: 2019Q4

REPORT INFORMATION
  Report Type: Spontaneous
  Country: US (occurrence: US)
  Receive Date: 20190903
  Receipt Date: 20190903
  Transmission Date: 20200122
  Serious: No
  Sender: FDA-Public Use
  Company Number: None

PATIENT
  Age: 58 Year
  Sex: Male
  Weight: 130.18 kg

DRUGS (1)
  1. HYDROCHLOROTHIAZIDE. [Suspect]
     Active Substance: HYDROCHLOROTHIAZIDE
     Indication: HYPERTENSION
     Dosage: ?          OTHER DOSE:12.5 MG;OTHER FREQUENCY:AM;?
     Route: 048
     Dates: start: 20180808, end: 20180829

REACTIONS (10)
  - Chills [None]
  - Dehydration [None]
  - Tachycardia [None]
  - Hyponatraemia [None]
  - Pyrexia [None]
  - Hypophagia [None]
  - Hypocalcaemia [None]
  - Hypotension [None]
  - Hypokalaemia [None]
  - Acute kidney injury [None]

NARRATIVE: CASE EVENT DATE: 20181029
